FAERS Safety Report 7414707-5 (Version None)
Quarter: 2011Q2

REPORT INFORMATION
  Report Type: 
  Country: None (occurrence: None)
  Receive Date: 20110414
  Receipt Date: 20110411
  Transmission Date: 20111010
  Serious: Yes (Disabling)
  Sender: FDA-Public Use
  Company Number: US-B.I. PHARMACEUTICALS,INC./RIDGEFIELD-2011-BP-01761BP

PATIENT
  Sex: Female

DRUGS (5)
  1. AMLODIPINE BESYLATE [Concomitant]
  2. BENAZEPRIL HYDROCHLORIDE [Concomitant]
  3. METOPROLOL TART [Concomitant]
  4. SPIRIVA [Suspect]
     Indication: CHRONIC OBSTRUCTIVE PULMONARY DISEASE
     Dosage: 18 MCG
     Route: 055
     Dates: start: 20101001
  5. HYDROCHLOROTHIAZIDE [Concomitant]

REACTIONS (4)
  - DENTAL CARIES [None]
  - TOOTH EROSION [None]
  - APTYALISM [None]
  - DRY MOUTH [None]
